FAERS Safety Report 24285344 (Version 1)
Quarter: 2024Q3

REPORT INFORMATION
  Report Type: Spontaneous
  Country: US (occurrence: None)
  Receive Date: 20240902
  Receipt Date: 20240902
  Transmission Date: 20241016
  Serious: No
  Sender: Public
  Company Number: None

PATIENT
  Sex: Female

DRUGS (1)
  1. CAPECITABINE [Suspect]
     Active Substance: CAPECITABINE
     Indication: Rectal cancer
     Dosage: DOSE/FREQUENCY: TAKE 3 TABLETS BY MOUTH IN THE MORNING AND 2 TABLETS IN THE EVENING FOR 14 DAYS ON
     Route: 048
     Dates: start: 202403

REACTIONS (1)
  - Colitis [None]

NARRATIVE: CASE EVENT DATE: 20240711
